FAERS Safety Report 7844446-8 (Version None)
Quarter: 2011Q4

REPORT INFORMATION
  Report Type: 
  Country: None (occurrence: None)
  Receive Date: 20111014
  Receipt Date: 20111006
  Transmission Date: 20120403
  Serious: Yes (Death)
  Sender: FDA-Public Use
  Company Number: DSA_47814_2011

PATIENT
  Sex: Female
  Weight: 69.4 kg

DRUGS (5)
  1. KLONOPIN [Concomitant]
  2. HALOPERIDOL [Concomitant]
  3. RISPERDAL [Concomitant]
  4. XENAZINE [Suspect]
     Indication: HUNTINGTON'S DISEASE
     Dosage: (12.5 MG TID, VIA G TUBE OTHER)
     Dates: start: 20100616, end: 20110712
  5. DURAGESIC-100 [Concomitant]

REACTIONS (1)
  - DEATH [None]
